FAERS Safety Report 12993537 (Version 1)
Quarter: 2016Q4

REPORT INFORMATION
  Report Type: Spontaneous
  Country: FR (occurrence: FR)
  Receive Date: 20161202
  Receipt Date: 20161202
  Transmission Date: 20170207
  Serious: Yes (Hospitalization)
  Sender: FDA-Public Use
  Company Number: FR-PFIZER INC-2016550771

PATIENT
  Age: 16 Year
  Sex: Female

DRUGS (13)
  1. ETOPOSIDE MYLAN [Suspect]
     Active Substance: ETOPOSIDE
     Indication: HODGKIN^S DISEASE
     Dosage: 195 MG, DAILY
     Route: 042
     Dates: start: 20160926, end: 20160930
  2. ONDANSETRON ACCORD [Suspect]
     Active Substance: ONDANSETRON
     Indication: PROPHYLAXIS OF NAUSEA AND VOMITING
     Dosage: 25 MG, DAILY
     Route: 042
     Dates: start: 20160926, end: 20161001
  3. CORTANCYL [Suspect]
     Active Substance: PREDNISONE
     Dosage: UNK
     Route: 048
     Dates: start: 20160926, end: 20161011
  4. CORTANCYL [Suspect]
     Active Substance: PREDNISONE
     Dosage: UNK
     Dates: start: 20161031
  5. VELBE [Interacting]
     Active Substance: VINBLASTINE SULFATE
     Dosage: UNK
     Dates: start: 20161031
  6. VINCRISTINE SULFATE. [Suspect]
     Active Substance: VINCRISTINE SULFATE
     Indication: HODGKIN^S DISEASE
     Dosage: 1.7 MG, DAILY
     Route: 041
     Dates: start: 20160926, end: 20161003
  7. ONDANSETRON ACCORD [Suspect]
     Active Substance: ONDANSETRON
     Dosage: 25 MG, DAILY
     Route: 042
     Dates: start: 20161011, end: 20161011
  8. DOXORUBICIN TEVA [Interacting]
     Active Substance: DOXORUBICIN
     Dosage: UNK
     Dates: start: 20161031
  9. ONDANSETRON ACCORD [Suspect]
     Active Substance: ONDANSETRON
     Dosage: 25 MG, DAILY
     Route: 042
     Dates: start: 20161003, end: 20161003
  10. VELBE [Interacting]
     Active Substance: VINBLASTINE SULFATE
     Indication: HODGKIN^S DISEASE
     Dosage: 9 MG, UNK
     Route: 042
     Dates: start: 20161011, end: 20161011
  11. EMEND [Interacting]
     Active Substance: APREPITANT
     Indication: PROPHYLAXIS OF NAUSEA AND VOMITING
     Dosage: UNK
     Route: 048
     Dates: end: 20161018
  12. DOXORUBICIN TEVA [Interacting]
     Active Substance: DOXORUBICIN
     Indication: HODGKIN^S DISEASE
     Dosage: 62 MG, UNK
     Route: 042
     Dates: start: 20160926, end: 20161011
  13. RIVOTRIL [Concomitant]
     Active Substance: CLONAZEPAM
     Indication: NEURALGIA
     Dosage: UNK
     Dates: end: 20161031

REACTIONS (6)
  - Drug interaction [Recovered/Resolved]
  - Neuralgia [Recovered/Resolved]
  - Aplasia [Recovered/Resolved]
  - Ileus [Recovered/Resolved]
  - Ileus [Recovered/Resolved]
  - Febrile bone marrow aplasia [Recovered/Resolved]

NARRATIVE: CASE EVENT DATE: 20160928
